FAERS Safety Report 13032906 (Version 1)
Quarter: 2016Q4

REPORT INFORMATION
  Report Type: Spontaneous
  Country: US (occurrence: US)
  Receive Date: 20161215
  Receipt Date: 20161215
  Transmission Date: 20170207
  Serious: No
  Sender: FDA-Public Use
  Company Number: US-BION-20160555

PATIENT
  Age: 30 Year
  Sex: Female
  Weight: 58.97 kg

DRUGS (2)
  1. PROGESTERONE. [Suspect]
     Active Substance: PROGESTERONE
     Dosage: 1 DF BD
     Route: 067
     Dates: start: 20160920
  2. BLOOD THINNING SHOT [Concomitant]

REACTIONS (4)
  - Vaginal discharge [Recovered/Resolved]
  - Drug prescribing error [Unknown]
  - Emotional distress [Unknown]
  - Off label use [Unknown]
